FAERS Safety Report 5563225-8 (Version None)
Quarter: 2007Q4

REPORT INFORMATION
  Report Type: 
  Country: None (occurrence: None)
  Receive Date: 20071213
  Receipt Date: 20071213
  Transmission Date: 20080405
  Serious: Yes (Life-Threatening, Hospitalization)
  Sender: FDA-Public Use
  Company Number: None

PATIENT
  Sex: Male
  Weight: 85 kg

DRUGS (2)
  1. LAPATINIB [Suspect]
     Indication: PANCREATIC CARCINOMA
     Dosage: 1500 MG DAILY PO
     Route: 048
     Dates: start: 20071121, end: 20071208
  2. GEMCITABINE [Suspect]
     Indication: PANCREATIC CARCINOMA
     Dosage: 1GM/M2 WKLY X 3 IV
     Route: 042
     Dates: start: 20071207

REACTIONS (6)
  - ANOREXIA [None]
  - CARBOHYDRATE ANTIGEN 19-9 INCREASED [None]
  - CEREBRAL ARTERY EMBOLISM [None]
  - CEREBROVASCULAR ACCIDENT [None]
  - FATIGUE [None]
  - NAUSEA [None]
